FAERS Safety Report 7397528-1 (Version None)
Quarter: 2011Q2

REPORT INFORMATION
  Report Type: 
  Country: None (occurrence: None)
  Receive Date: 20110406
  Receipt Date: 20110401
  Transmission Date: 20111010
  Serious: No
  Sender: FDA-Public Use
  Company Number: US-TEVA-274637USA

PATIENT
  Sex: Female

DRUGS (3)
  1. PLAN B ONE-STEP [Suspect]
     Indication: POST COITAL CONTRACEPTION
     Route: 048
     Dates: start: 20110328, end: 20110328
  2. TOPAMAX [Concomitant]
     Indication: HEADACHE
     Route: 048
  3. ZOLOFT [Concomitant]
     Indication: ANXIETY
     Route: 048

REACTIONS (1)
  - MENSTRUATION IRREGULAR [None]
